FAERS Safety Report 6879656-X (Version None)
Quarter: 2010Q3

REPORT INFORMATION
  Report Type: 
  Country: None (occurrence: None)
  Receive Date: 20100728
  Receipt Date: 20100310
  Transmission Date: 20110219
  Serious: No
  Sender: FDA-Public Use
  Company Number: US-MYLANLABS-2010S1004175

PATIENT
  Age: 64 Year
  Sex: Female
  Weight: 63.5 kg

DRUGS (2)
  1. CLONIDINE HYDROCHLORIDE [Suspect]
     Indication: INSOMNIA
     Route: 048
     Dates: start: 20100309, end: 20100309
  2. DICLOFENAC [Concomitant]
     Indication: INFLAMMATION

REACTIONS (6)
  - AMNESIA [None]
  - COMMUNICATION DISORDER [None]
  - HALLUCINATION [None]
  - IRRITABILITY [None]
  - MOOD SWINGS [None]
  - SOMNOLENCE [None]
